FAERS Safety Report 4424000-0 (Version None)
Quarter: 2004Q3

REPORT INFORMATION
  Report Type: 
  Country: None (occurrence: None)
  Receive Date: 20040806
  Receipt Date: 20040719
  Transmission Date: 20050211
  Serious: Yes (Life-Threatening)
  Sender: FDA-Public Use
  Company Number: FR_040704459

PATIENT
  Age: 17 Year
  Sex: Female
  Weight: 164 kg

DRUGS (3)
  1. PROZAC [Suspect]
     Dates: end: 20040426
  2. TERCIAN (CYAMEMAZINE) [Concomitant]
  3. NOCTRAN [Concomitant]

REACTIONS (4)
  - AGRANULOCYTOSIS [None]
  - EAR INFECTION [None]
  - NEUTROPENIA [None]
  - PYREXIA [None]
